FAERS Safety Report 22102481 (Version 1)
Quarter: 2023Q1

REPORT INFORMATION
  Report Type: Other
  Country: AU (occurrence: AU)
  Receive Date: 20230316
  Receipt Date: 20230316
  Transmission Date: 20230418
  Serious: Yes (Other)
  Sender: FDA-Public Use
  Company Number: AU-CELLTRION INC.-2023AU005057

PATIENT

DRUGS (9)
  1. RITUXIMAB [Suspect]
     Active Substance: RITUXIMAB
     Indication: Product used for unknown indication
  2. CYCLOPHOSPHAMIDE [Suspect]
     Active Substance: CYCLOPHOSPHAMIDE
     Indication: Product used for unknown indication
  3. DOXORUBICIN HYDROCHLORIDE [Suspect]
     Active Substance: DOXORUBICIN HYDROCHLORIDE
     Indication: Product used for unknown indication
  4. CARBOPLATIN [Suspect]
     Active Substance: CARBOPLATIN
     Indication: Product used for unknown indication
  5. ETOPOSIDE PHOSPHATE [Suspect]
     Active Substance: ETOPOSIDE PHOSPHATE
     Indication: Product used for unknown indication
  6. FLUDARABINE PHOSPHATE [Suspect]
     Active Substance: FLUDARABINE PHOSPHATE
     Indication: Product used for unknown indication
     Dosage: UNK
  7. IFOSFAMIDE [Suspect]
     Active Substance: IFOSFAMIDE
     Indication: Product used for unknown indication
  8. PREDNISONE [Suspect]
     Active Substance: PREDNISONE
     Indication: Product used for unknown indication
     Dosage: UNK
  9. VINCRISTINE SULFATE [Suspect]
     Active Substance: VINCRISTINE SULFATE
     Indication: Product used for unknown indication

REACTIONS (14)
  - Diffuse large B-cell lymphoma [Unknown]
  - Plasmablastic lymphoma [Unknown]
  - Aspergillus infection [Unknown]
  - Cardiac failure congestive [Unknown]
  - Neutropenia [Unknown]
  - Pneumocystis jirovecii pneumonia [Unknown]
  - Gastrointestinal tract adenoma [Unknown]
  - Hepatic lesion [Unknown]
  - Richter^s syndrome [Unknown]
  - Diarrhoea [Unknown]
  - Epstein-Barr virus infection [Unknown]
  - Malaise [Unknown]
  - Nausea [Unknown]
  - Weight decreased [Unknown]
